FAERS Safety Report 5444538-7 (Version None)
Quarter: 2007Q3

REPORT INFORMATION
  Report Type: 
  Country: None (occurrence: None)
  Receive Date: 20070906
  Receipt Date: 20070830
  Transmission Date: 20080115
  Serious: Yes (Hospitalization)
  Sender: FDA-Public Use
  Company Number: SE-AVENTIS-200717948GDDC

PATIENT
  Age: 46 Year
  Sex: Female

DRUGS (1)
  1. TAXOTERE [Suspect]
     Dosage: DOSE: UNK
     Route: 042
     Dates: start: 20070101, end: 20070101

REACTIONS (4)
  - DYSAESTHESIA [None]
  - FAECAL INCONTINENCE [None]
  - NERVE BLOCK [None]
  - URINARY INCONTINENCE [None]
